FAERS Safety Report 16614678 (Version 2)
Quarter: 2019Q3

REPORT INFORMATION
  Report Type: Spontaneous
  Country: JP (occurrence: JP)
  Receive Date: 20190723
  Receipt Date: 20190804
  Transmission Date: 20191004
  Serious: Yes (Life-Threatening)
  Sender: FDA-Public Use
  Company Number: JP-CELGENEUS-JPN-20190707480

PATIENT
  Age: 65 Year
  Sex: Male
  Weight: 47.1 kg

DRUGS (4)
  1. ABRAXANE [Suspect]
     Active Substance: PACLITAXEL
     Dosage: 160 MILLIGRAM
     Route: 041
     Dates: start: 20190205
  2. ABRAXANE [Suspect]
     Active Substance: PACLITAXEL
     Indication: PANCREATIC CARCINOMA
     Dosage: 210 MILLIGRAM
     Route: 041
     Dates: start: 20190108, end: 20190108
  3. GEMCITABINE. [Suspect]
     Active Substance: GEMCITABINE
     Indication: PANCREATIC CARCINOMA
     Dosage: 1600 MILLIGRAM
     Route: 041
     Dates: start: 20190108, end: 20190108
  4. GEMCITABINE. [Suspect]
     Active Substance: GEMCITABINE
     Dosage: 1300 MILLIGRAM
     Route: 041
     Dates: start: 20190205

REACTIONS (1)
  - Interstitial lung disease [Recovered/Resolved with Sequelae]

NARRATIVE: CASE EVENT DATE: 20190223
